FAERS Safety Report 9688092 (Version 1)
Quarter: 2013Q4

REPORT INFORMATION
  Report Type: Spontaneous
  Country: FR (occurrence: FR)
  Receive Date: 20131114
  Receipt Date: 20131114
  Transmission Date: 20140711
  Serious: Yes (Hospitalization)
  Sender: FDA-Public Use
  Company Number: FR-MYLANLABS-2013S1025183

PATIENT
  Age: 58 Year
  Sex: Female

DRUGS (4)
  1. BYETTA [Suspect]
     Indication: INTENTIONAL OVERDOSE
     Dosage: ENTIRE CONTENTS OF EXENATIDE PEN
     Route: 058
  2. LEVOMEPROMAZINE [Suspect]
     Indication: INTENTIONAL OVERDOSE
     Route: 048
  3. CLONAZEPAM [Suspect]
     Indication: INTENTIONAL OVERDOSE
     Dosage: UNKNOWN AMOUNT
     Route: 048
  4. ZOPICLONE [Suspect]
     Indication: INTENTIONAL OVERDOSE
     Dosage: UNKNOWN AMOUNT
     Route: 048

REACTIONS (7)
  - Hypoglycaemia [Recovering/Resolving]
  - Coma [Recovering/Resolving]
  - Toxicity to various agents [Recovering/Resolving]
  - Intentional overdose [Recovering/Resolving]
  - Drug interaction [Recovering/Resolving]
  - Drug effect delayed [Recovering/Resolving]
  - Nausea [Recovering/Resolving]
